FAERS Safety Report 25937422 (Version 1)
Quarter: 2025Q4

REPORT INFORMATION
  Report Type: Spontaneous
  Country: GB (occurrence: GB)
  Receive Date: 20251018
  Receipt Date: 20251018
  Transmission Date: 20260117
  Serious: Yes (Hospitalization)
  Sender: ACCORD
  Company Number: GB-MLMSERVICE-20250929-PI659366-00295-1

PATIENT
  Age: 70 Year
  Sex: Female

DRUGS (4)
  1. SERTRALINE [Interacting]
     Active Substance: SERTRALINE HYDROCHLORIDE
     Indication: Depression
  2. RIFAMPIN [Interacting]
     Active Substance: RIFAMPIN
     Indication: Brucellosis
  3. RIFAMPIN [Interacting]
     Active Substance: RIFAMPIN
     Indication: Brucellosis
     Route: 048
  4. DOXYCYCLINE [Concomitant]
     Active Substance: DOXYCYCLINE
     Indication: Brucellosis
     Route: 048

REACTIONS (2)
  - Panic disorder [Recovering/Resolving]
  - Inhibitory drug interaction [Unknown]
